FAERS Safety Report 19003534 (Version 1)
Quarter: 2021Q1

REPORT INFORMATION
  Report Type: Spontaneous
  Country: US (occurrence: US)
  Receive Date: 20210312
  Receipt Date: 20210312
  Transmission Date: 20210420
  Serious: Yes (Hospitalization)
  Sender: FDA-Public Use
  Company Number: US-PRINSTON PHARMACEUTICAL INC.-2021PRN00085

PATIENT
  Sex: Male
  Weight: 79.37 kg

DRUGS (2)
  1. FLUOXETINE [Concomitant]
     Active Substance: FLUOXETINE HYDROCHLORIDE
  2. LISINOPRIL. [Suspect]
     Active Substance: LISINOPRIL
     Indication: HYPERTENSION
     Dosage: 20 MG, 1X/DAY
     Route: 048
     Dates: start: 20210223, end: 20210224

REACTIONS (2)
  - Hypersensitivity [Unknown]
  - Product quality issue [Unknown]

NARRATIVE: CASE EVENT DATE: 2021
